FAERS Safety Report 25779320 (Version 2)
Quarter: 2025Q3

REPORT INFORMATION
  Report Type: Report from Study
  Country: US (occurrence: US)
  Receive Date: 20250909
  Receipt Date: 20250929
  Transmission Date: 20251021
  Serious: Yes (Other)
  Sender: OTSUKA
  Company Number: US-MMM-Otsuka-P19HSUKJ

PATIENT
  Age: 55 Year
  Sex: Female
  Weight: 70.75 kg

DRUGS (3)
  1. TOLVAPTAN [Suspect]
     Active Substance: TOLVAPTAN
     Indication: Congenital cystic kidney disease
     Route: 065
  2. TOLVAPTAN [Suspect]
     Active Substance: TOLVAPTAN
     Dosage: 90 MG, QD
     Route: 065
  3. TOLVAPTAN [Suspect]
     Active Substance: TOLVAPTAN
     Dosage: 30 MG, QD
     Route: 065

REACTIONS (3)
  - Hysterectomy [Recovered/Resolved]
  - Hysteropexy [Recovered/Resolved]
  - Genital prolapse [Unknown]

NARRATIVE: CASE EVENT DATE: 20250806
